FAERS Safety Report 18901230 (Version 2)
Quarter: 2021Q1

REPORT INFORMATION
  Report Type: Spontaneous
  Country: CL (occurrence: CL)
  Receive Date: 20210216
  Receipt Date: 20210310
  Transmission Date: 20210420
  Serious: Yes (Other)
  Sender: FDA-Public Use
  Company Number: CL-BIOMARINAP-CL-2021-134996

PATIENT
  Age: 18 Year
  Sex: Female
  Weight: 35 kg

DRUGS (1)
  1. NAGLAZYME [Suspect]
     Active Substance: GALSULFASE
     Indication: MUCOPOLYSACCHARIDOSIS VI
     Dosage: UNK, QW
     Route: 042
     Dates: start: 20130706

REACTIONS (3)
  - Headache [Recovered/Resolved]
  - Nausea [Recovered/Resolved]
  - Hydrocephalus [Unknown]

NARRATIVE: CASE EVENT DATE: 20210206
